FAERS Safety Report 4428795-1 (Version None)
Quarter: 2004Q3

REPORT INFORMATION
  Report Type: 
  Country: None (occurrence: None)
  Receive Date: 20040818
  Receipt Date: 20040816
  Transmission Date: 20050211
  Serious: Yes (Death)
  Sender: FDA-Public Use
  Company Number: US-JNJFOC-20040602345

PATIENT
  Sex: Male
  Weight: 81.65 kg

DRUGS (12)
  1. RISPERDAL [Suspect]
     Indication: SCHIZOPHRENIA
     Route: 049
     Dates: start: 20031112, end: 20040204
  2. ATIVAN [Concomitant]
     Indication: RESTLESSNESS
  3. ATIVAN [Concomitant]
     Indication: ANXIETY
  4. ATIVAN [Concomitant]
     Indication: IRRITABILITY
  5. PAXIL [Concomitant]
     Indication: ANXIETY
  6. PAROXETINE HCL [Concomitant]
  7. PENTOXIFYLLINE [Concomitant]
  8. OXYBUTYNIN CHLORIDE [Concomitant]
  9. HUMULIN N 100 [Concomitant]
  10. LEVOXYL [Concomitant]
  11. FLONASE [Concomitant]
  12. LISINOPRIL [Concomitant]

REACTIONS (1)
  - ASPIRATION [None]
